FAERS Safety Report 24174619 (Version 1)
Quarter: 2024Q3

REPORT INFORMATION
  Report Type: Spontaneous
  Country: US (occurrence: US)
  Receive Date: 20240805
  Receipt Date: 20240805
  Transmission Date: 20241016
  Serious: No
  Sender: DR REDDYS
  Company Number: US-E2BLSMVVAL-SPO/USA/24/0011291

PATIENT
  Age: 19 Year
  Sex: Female

DRUGS (1)
  1. ACCUTANE [Suspect]
     Active Substance: ISOTRETINOIN
     Indication: Product used for unknown indication

REACTIONS (1)
  - Abdominal pain [Unknown]
